FAERS Safety Report 7573829-9 (Version None)
Quarter: 2011Q2

REPORT INFORMATION
  Report Type: 
  Country: None (occurrence: None)
  Receive Date: 20110627
  Receipt Date: 20110607
  Transmission Date: 20111010
  Serious: Yes (Hospitalization)
  Sender: FDA-Public Use
  Company Number: A0870676A

PATIENT
  Age: 72 Year
  Sex: Male
  Weight: 113.6 kg

DRUGS (5)
  1. PLAVIX [Concomitant]
  2. MICRONASE [Concomitant]
  3. AVANDIA [Suspect]
     Route: 048
     Dates: start: 20030101, end: 20040801
  4. ZOCOR [Concomitant]
  5. GLUCOPHAGE [Concomitant]

REACTIONS (5)
  - CARDIAC FAILURE CONGESTIVE [None]
  - ANGINA UNSTABLE [None]
  - ATRIAL FIBRILLATION [None]
  - ATRIAL FLUTTER [None]
  - MYOCARDIAL INFARCTION [None]
